FAERS Safety Report 8084583 (Version 6)
Quarter: 2014Q1

REPORT INFORMATION
  Report Type: Spontaneous
  Country: US (occurrence: US)
  Receive Date: 20110810
  Receipt Date: 20140119
  Transmission Date: 20141002
  Serious: Yes (Hospitalization, Disabling, Other)
  Sender: FDA-Public Use
  Company Number: US-009507513-1108USA01141

PATIENT
  Sex: Female
  Weight: 83.92 kg

DRUGS (3)
  1. FOSAMAX [Suspect]
     Indication: OSTEOPOROSIS PROPHYLAXIS
     Dosage: 10 MG, UNK
     Route: 048
     Dates: start: 19960727, end: 20010130
  2. FOSAMAX [Suspect]
     Dosage: 70 MG, UNK
     Route: 048
     Dates: start: 20010130, end: 20080108
  3. FOSAMAX PLUS D [Suspect]
     Indication: OSTEOPOROSIS PROPHYLAXIS
     Dosage: 70/5600
     Route: 048
     Dates: start: 20080108, end: 20100324

REACTIONS (28)
  - Femur fracture [Not Recovered/Not Resolved]
  - Fall [Unknown]
  - Rib fracture [Unknown]
  - Vitamin D deficiency [Unknown]
  - Exostosis [Unknown]
  - Tendon calcification [Unknown]
  - Osteoarthritis [Unknown]
  - Blood cholesterol increased [Unknown]
  - Fatigue [Unknown]
  - Migraine [Unknown]
  - Pleural effusion [Unknown]
  - Fall [Unknown]
  - Rib fracture [Unknown]
  - Atelectasis [Unknown]
  - Fall [Unknown]
  - Contusion [Unknown]
  - Joint injury [Unknown]
  - Ligament sprain [Unknown]
  - Cellulitis [Unknown]
  - White blood cell count decreased [Unknown]
  - Plantar fasciitis [Unknown]
  - Hyperlipidaemia [Unknown]
  - Infected dermal cyst [Unknown]
  - Fall [Unknown]
  - Pain [Unknown]
  - Neck pain [Unknown]
  - Headache [Unknown]
  - Gastrooesophageal reflux disease [Unknown]
